FAERS Safety Report 4848437-0 (Version None)
Quarter: 2005Q4

REPORT INFORMATION
  Report Type: 
  Country: None (occurrence: None)
  Receive Date: 20051208
  Receipt Date: 20051126
  Transmission Date: 20060501
  Serious: Yes (Other)
  Sender: FDA-Public Use
  Company Number: SK-GLAXOSMITHKLINE-B0402362A

PATIENT
  Age: 74 Year
  Sex: Female
  Weight: 102 kg

DRUGS (2)
  1. AVANDAMET [Suspect]
     Dosage: 1TAB TWICE PER DAY
     Route: 048
     Dates: start: 20050621, end: 20050908
  2. DIAPREL MR [Concomitant]
     Dosage: 30MG FOUR TIMES PER DAY
     Route: 048
     Dates: start: 20050909

REACTIONS (1)
  - VISUAL ACUITY REDUCED [None]
